FAERS Safety Report 13162158 (Version 1)
Quarter: 2017Q1

REPORT INFORMATION
  Report Type: Spontaneous
  Country: US (occurrence: US)
  Receive Date: 20170126
  Receipt Date: 20170126
  Transmission Date: 20170428
  Serious: No
  Sender: FDA-Public Use
  Company Number: None

PATIENT
  Sex: Female

DRUGS (1)
  1. HUMIRA [Suspect]
     Active Substance: ADALIMUMAB
     Indication: HIDRADENITIS
     Route: 058
     Dates: start: 20160427

REACTIONS (5)
  - Alopecia [None]
  - Dry skin [None]
  - Skin exfoliation [None]
  - Skin burning sensation [None]
  - Psoriasis [None]
